FAERS Safety Report 6576230-X (Version None)
Quarter: 2010Q1

REPORT INFORMATION
  Report Type: 
  Country: None (occurrence: None)
  Receive Date: 20100209
  Receipt Date: 20100208
  Transmission Date: 20100710
  Serious: Yes (Death)
  Sender: FDA-Public Use
  Company Number: GR-BRISTOL-MYERS SQUIBB COMPANY-14788194

PATIENT
  Age: 68 Year
  Sex: Female
  Weight: 90 kg

DRUGS (11)
  1. IXABEPILONE [Suspect]
     Indication: BREAST CANCER
     Dosage: LAST DOSE ON 29JUL09 SINGLE DOSE: 79MG THERAPY DURATION:6DAYS
     Route: 042
     Dates: start: 20090729
  2. ZOFRAN [Concomitant]
     Indication: PREMEDICATION
     Route: 042
     Dates: start: 20090729, end: 20090729
  3. ZANTAC [Concomitant]
     Indication: PREMEDICATION
     Route: 042
     Dates: start: 20090729, end: 20090729
  4. FENISTIL [Concomitant]
     Indication: PREMEDICATION
     Route: 042
     Dates: start: 20090729, end: 20090729
  5. DEXAMETHASONE [Concomitant]
     Indication: PREMEDICATION
     Route: 042
     Dates: start: 20090729, end: 20090729
  6. PLAVIX [Concomitant]
     Indication: CEREBROVASCULAR ACCIDENT
     Route: 048
  7. PENTOPRIL [Concomitant]
     Indication: HYPERTENSION
     Dosage: PENTOPRIL-ENALAPRIL 20 MG + 12.5 MG.
     Route: 048
     Dates: start: 20040615, end: 20090804
  8. ENALAPRIL MALEATE [Concomitant]
     Indication: HYPERTENSION
     Route: 048
     Dates: start: 20040615, end: 20090804
  9. HYDROCHLOROTHIAZIDE [Concomitant]
  10. DILATREND [Concomitant]
     Indication: HYPERTENSION
     Route: 048
     Dates: start: 20040615, end: 20090804
  11. OMEPRAZOLE [Concomitant]
     Indication: GASTROINTESTINAL DISORDER
     Route: 048

REACTIONS (4)
  - ARTERIOSCLEROSIS CORONARY ARTERY [None]
  - DYSPNOEA [None]
  - HYPOTENSION [None]
  - MYOCARDIAL ISCHAEMIA [None]
